FAERS Safety Report 10243207 (Version 1)
Quarter: 2014Q2

REPORT INFORMATION
  Report Type: Spontaneous
  Country: US (occurrence: None)
  Receive Date: 20140616
  Receipt Date: 20140616
  Transmission Date: 20141212
  Serious: Yes (Life-Threatening)
  Sender: FDA-Public Use
  Company Number: None

PATIENT
  Age: 70 Year
  Sex: Female
  Weight: 69.4 kg

DRUGS (1)
  1. DICLOFENAC-MISOPROST [Suspect]
     Indication: INFLAMMATION
     Dosage: 1 TWICE DAILY TAKEN BY MOUTH
     Route: 048
     Dates: start: 20140609, end: 20140610

REACTIONS (7)
  - Abdominal pain upper [None]
  - Nausea [None]
  - Vomiting [None]
  - Diarrhoea [None]
  - Rash [None]
  - Chills [None]
  - Chest discomfort [None]
